FAERS Safety Report 12799246 (Version 3)
Quarter: 2016Q4

REPORT INFORMATION
  Report Type: Spontaneous
  Country: FR (occurrence: FR)
  Receive Date: 20160930
  Receipt Date: 20161230
  Transmission Date: 20170207
  Serious: Yes (Hospitalization)
  Sender: FDA-Public Use
  Company Number: FR-SA-2016SA176900

PATIENT
  Age: 84 Year
  Sex: Female

DRUGS (13)
  1. SOTALEX [Suspect]
     Active Substance: SOTALOL
     Indication: ATRIAL FIBRILLATION
     Route: 048
     Dates: start: 20160805, end: 20160827
  2. SOTALEX [Suspect]
     Active Substance: SOTALOL
     Indication: ARRHYTHMIA
     Route: 048
  3. LEVOTHYROX [Concomitant]
     Active Substance: LEVOTHYROXINE
     Route: 065
  4. SOTALEX [Suspect]
     Active Substance: SOTALOL
     Indication: ARRHYTHMIA
     Route: 048
     Dates: start: 20160805, end: 20160827
  5. SOTALEX [Suspect]
     Active Substance: SOTALOL
     Indication: ATRIAL FIBRILLATION
     Route: 048
  6. SOTALEX [Suspect]
     Active Substance: SOTALOL
     Indication: ATRIAL FIBRILLATION
     Route: 048
  7. BIPRETERAX [Suspect]
     Active Substance: INDAPAMIDE\PERINDOPRIL
     Indication: HYPERTENSION
     Dosage: START DATE: LONG COURSE
     Route: 048
     Dates: end: 20160827
  8. SOTALEX [Suspect]
     Active Substance: SOTALOL
     Indication: ARRHYTHMIA
     Route: 048
  9. DOLIPRANE [Concomitant]
     Active Substance: ACETAMINOPHEN
     Route: 065
  10. PAROXETINE HYDROCHLORIDE. [Suspect]
     Active Substance: PAROXETINE HYDROCHLORIDE
     Indication: DEPRESSION
     Dosage: START DATE: LONG COURSE
     Route: 048
     Dates: end: 20160827
  11. PREVISCAN [Concomitant]
     Active Substance: FLUINDIONE
     Route: 065
  12. STILNOX [Suspect]
     Active Substance: ZOLPIDEM TARTRATE
     Indication: INSOMNIA
     Dosage: START DATE: LONG COURSE
     Route: 048
     Dates: end: 20160831
  13. SERESTA [Suspect]
     Active Substance: OXAZEPAM
     Indication: DEPRESSION
     Dosage: START DATE: LONG COURSE
     Route: 048
     Dates: end: 20160827

REACTIONS (2)
  - Inappropriate antidiuretic hormone secretion [Recovered/Resolved]
  - Major depression [Recovered/Resolved]

NARRATIVE: CASE EVENT DATE: 20160827
